FAERS Safety Report 11282597 (Version 2)
Quarter: 2015Q4

REPORT INFORMATION
  Report Type: Report from Study
  Country: US (occurrence: US)
  Receive Date: 20150720
  Receipt Date: 20151102
  Transmission Date: 20160304
  Serious: Yes (Hospitalization, Other)
  Sender: FDA-Public Use
  Company Number: US-AMGEN-USASP2015071035

PATIENT
  Age: 59 Year
  Sex: Male

DRUGS (1)
  1. ENBREL [Suspect]
     Active Substance: ETANERCEPT
     Indication: RHEUMATOID ARTHRITIS
     Dosage: UNK UNK, QWK
     Route: 065
     Dates: start: 201003

REACTIONS (13)
  - Intervertebral disc protrusion [Unknown]
  - Pain [Unknown]
  - Neck surgery [Unknown]
  - Carpal tunnel syndrome [Unknown]
  - Musculoskeletal disorder [Unknown]
  - Knee arthroplasty [Unknown]
  - Surgery [Unknown]
  - Drug ineffective [Unknown]
  - Trigger finger [Unknown]
  - Intervertebral disc degeneration [Unknown]
  - Drug effect decreased [Unknown]
  - Injection site pain [Unknown]
  - Arthropathy [Unknown]

NARRATIVE: CASE EVENT DATE: 2010
